FAERS Safety Report 7224237-1 (Version None)
Quarter: 2011Q1

REPORT INFORMATION
  Report Type: 
  Country: None (occurrence: None)
  Receive Date: 20110106
  Receipt Date: 20110106
  Transmission Date: 20110831
  Serious: Yes (Other)
  Sender: FDA-Public Use
  Company Number: None

PATIENT
  Age: 14 Year
  Sex: Male
  Weight: 56.246 kg

DRUGS (3)
  1. HISTRELIN [Concomitant]
  2. CITALOPRAM [Concomitant]
  3. OMNITROPE [Suspect]
     Indication: ANGIOEDEMA
     Dosage: 5.0 MG SQ NIGHTLY
     Route: 058
     Dates: start: 20100913

REACTIONS (3)
  - SWELLING FACE [None]
  - ARTHRALGIA [None]
  - DYSPNOEA [None]
